FAERS Safety Report 8077360-6 (Version None)
Quarter: 2012Q1

REPORT INFORMATION
  Report Type: 
  Country: None (occurrence: None)
  Receive Date: 20120127
  Receipt Date: 20120123
  Transmission Date: 20120608
  Serious: No
  Sender: FDA-Public Use
  Company Number: US-PFIZER INC-2012019208

PATIENT
  Sex: Female

DRUGS (2)
  1. TOVIAZ [Suspect]
     Indication: POLLAKIURIA
     Dosage: UNK
     Route: 048
     Dates: start: 20120101
  2. DETROL LA [Suspect]
     Dosage: UNK
     Route: 048

REACTIONS (4)
  - EYE DISORDER [None]
  - DRUG INEFFECTIVE [None]
  - SLEEP DISORDER [None]
  - NOCTURIA [None]
